FAERS Safety Report 16029888 (Version 3)
Quarter: 2020Q2

REPORT INFORMATION
  Report Type: Report from Study
  Country: US (occurrence: US)
  Receive Date: 20190304
  Receipt Date: 20200421
  Transmission Date: 20200713
  Serious: Yes (Hospitalization)
  Sender: FDA-Public Use
  Company Number: US-ASTELLAS-2019US006085

PATIENT
  Sex: Female

DRUGS (2)
  1. ASP2215 [Suspect]
     Active Substance: GILTERITINIB
     Route: 048
  2. ASP2215 [Suspect]
     Active Substance: GILTERITINIB
     Indication: ACUTE MYELOID LEUKAEMIA
     Route: 048
     Dates: start: 20190122

REACTIONS (4)
  - Fatigue [Unknown]
  - Intentional dose omission [Unknown]
  - Therapy interrupted [Unknown]
  - Platelet count decreased [Unknown]
